FAERS Safety Report 7765658-8 (Version None)
Quarter: 2011Q3

REPORT INFORMATION
  Report Type: 
  Country: None (occurrence: None)
  Receive Date: 20110921
  Receipt Date: 20110916
  Transmission Date: 20111222
  Serious: Yes (Death)
  Sender: FDA-Public Use
  Company Number: IT-PFIZER INC-2011210480

PATIENT
  Age: 82 Year
  Sex: Male

DRUGS (2)
  1. SUTENT [Suspect]
     Indication: RENAL CELL CARCINOMA
     Dosage: 25 MG, UNK
     Route: 048
     Dates: start: 20010601, end: 20110601
  2. CO-EFFERALGAN [Concomitant]
     Dosage: 1 DF, 3X/DAY
     Route: 048

REACTIONS (2)
  - DISEASE PROGRESSION [None]
  - RENAL CELL CARCINOMA [None]
